FAERS Safety Report 4365464-0 (Version None)
Quarter: 2004Q2

REPORT INFORMATION
  Report Type: 
  Country: None (occurrence: None)
  Receive Date: 20040526
  Receipt Date: 20040519
  Transmission Date: 20050107
  Serious: Yes (Hospitalization)
  Sender: FDA-Public Use
  Company Number: TR-BRISTOL-MYERS SQUIBB COMPANY-12591350

PATIENT

DRUGS (2)
  1. CAPTOPRIL [Suspect]
  2. ANGIOCONTRAST [Suspect]
     Route: 042

REACTIONS (2)
  - CONTRAST MEDIA REACTION [None]
  - NEPHROPATHY TOXIC [None]
